FAERS Safety Report 7511562-X (Version None)
Quarter: 2011Q2

REPORT INFORMATION
  Report Type: 
  Country: None (occurrence: None)
  Receive Date: 20110531
  Receipt Date: 20110520
  Transmission Date: 20111010
  Serious: Yes (Hospitalization, Other)
  Sender: FDA-Public Use
  Company Number: AT-BRISTOL-MYERS SQUIBB COMPANY-15679830

PATIENT
  Age: 51 Year
  Sex: Female

DRUGS (14)
  1. SERTRALINE HYDROCHLORIDE [Concomitant]
     Dosage: SERTRALINE WAS INCREASED FROM 50 MG TO 100 MG
  2. XEFO [Concomitant]
     Dosage: 1-0-1-0
  3. ZOLPIDEM TARTRATE [Suspect]
     Dosage: IN THE EVENING
  4. AGOPTON [Concomitant]
     Dosage: 1-0-0-0-0
  5. CYMBALTA [Suspect]
     Dosage: CYMBALTA 60MG ENTEREIC COATED HARD CAPS
  6. SEROQUEL [Suspect]
     Dosage: SEROQUEL RETARD TABS 200MG,SEROQUEL FILM COATED TABS 200MG,0-0-0-0.5
  7. BIPERIDEN HYDROCHLORIDE TAB [Concomitant]
  8. LITHIUM CARBONATE [Suspect]
     Dosage: QUILONORM XR RETARD FILM COATED TABS 1-0-0-1,ALSO TAKEN 450MG(1-0-0-0.5)
  9. DEPAKENE [Suspect]
     Dosage: DEPAKINE CHRONO RETARD FILM COATED TABS500 MG 1.5 -0-0-1.5
  10. PAROXETINE HCL [Suspect]
     Dosage: IN MORNING
  11. LITHIUM CARBONATE [Concomitant]
     Dosage: LITHIUM 675
  12. ABILIFY [Suspect]
     Indication: BIPOLAR DISORDER
     Dosage: INITAIL DOSE 5 MG INC TO 10MG AND INC TO 15MG; RED TO 10MG; AND STOPPED AND RESTARTED
     Route: 048
     Dates: start: 20080701
  13. SERTRALINE HYDROCHLORIDE [Suspect]
     Dosage: SERTRALINE 100 MG TABS
  14. TRESLEEN [Suspect]
     Dosage: TRESLEEN 100MG 1-0-0-0.5

REACTIONS (3)
  - BIPOLAR DISORDER [None]
  - EXTRAPYRAMIDAL DISORDER [None]
  - HYPERLIPIDAEMIA [None]
